FAERS Safety Report 21193320 (Version 2)
Quarter: 2022Q3

REPORT INFORMATION
  Report Type: Spontaneous
  Country: None (occurrence: CN)
  Receive Date: 20220810
  Receipt Date: 20220902
  Transmission Date: 20221026
  Serious: Yes (Other)
  Sender: FDA-Public Use
  Company Number: CN-Jiangsu Hengrui Medicine Co., Ltd.-2131674

PATIENT
  Age: 60 Year
  Sex: Female

DRUGS (5)
  1. CISATRACURIUM BESYLATE [Suspect]
     Active Substance: CISATRACURIUM BESYLATE
  2. SUFENTANIL [Concomitant]
     Active Substance: SUFENTANIL
  3. PROPOFOL [Concomitant]
     Active Substance: PROPOFOL
  4. ETOMIDATE [Concomitant]
     Active Substance: ETOMIDATE
  5. LIDOCAINE [Concomitant]
     Active Substance: LIDOCAINE

REACTIONS (1)
  - Hypertensive crisis [Recovered/Resolved]
